FAERS Safety Report 18950232 (Version 1)
Quarter: 2021Q1

REPORT INFORMATION
  Report Type: Spontaneous
  Country: US (occurrence: US)
  Receive Date: 20210228
  Receipt Date: 20210228
  Transmission Date: 20210420
  Serious: No
  Sender: FDA-Public Use
  Company Number: US-ROCHE-2707825

PATIENT
  Sex: Female

DRUGS (4)
  1. XOLAIR [Suspect]
     Active Substance: OMALIZUMAB
  2. XOLAIR [Suspect]
     Active Substance: OMALIZUMAB
  3. XOLAIR [Suspect]
     Active Substance: OMALIZUMAB
     Indication: ASTHMA
     Dosage: 300 MG EVERY 4 WEEKS?XOLAIR PFS 150MG/ML
     Route: 058
     Dates: start: 20200505
  4. PREDNISONE. [Concomitant]
     Active Substance: PREDNISONE
     Dosage: FOR FLARES

REACTIONS (2)
  - Drug ineffective [Unknown]
  - No adverse event [Unknown]
